FAERS Safety Report 21134472 (Version 1)
Quarter: 2022Q3

REPORT INFORMATION
  Report Type: Report from Study
  Country: US (occurrence: US)
  Receive Date: 20220726
  Receipt Date: 20220726
  Transmission Date: 20221027
  Serious: Yes (Hospitalization)
  Sender: FDA-Public Use
  Company Number: US-ABBVIE-22K-163-4441493-00

PATIENT
  Sex: Male

DRUGS (1)
  1. IMBRUVICA [Suspect]
     Active Substance: IBRUTINIB
     Indication: Chronic lymphocytic leukaemia
     Route: 048
     Dates: start: 201804

REACTIONS (6)
  - Accident [Unknown]
  - Device issue [Recovering/Resolving]
  - Arrhythmia [Recovering/Resolving]
  - Dizziness [Recovering/Resolving]
  - Stomatitis [Unknown]
  - Fatigue [Unknown]
